FAERS Safety Report 16486890 (Version 1)
Quarter: 2019Q3

REPORT INFORMATION
  Report Type: Spontaneous
  Country: US (occurrence: US)
  Receive Date: 20190625
  Receipt Date: 20190625
  Transmission Date: 20191004
  Serious: Yes (Other)
  Sender: FDA-Public Use
  Company Number: None

PATIENT
  Age: 62 Year
  Sex: Female
  Weight: 72.9 kg

DRUGS (12)
  1. NEUPOGEN [Concomitant]
     Active Substance: FILGRASTIM
  2. ZOFRAN [Concomitant]
     Active Substance: ONDANSETRON HYDROCHLORIDE
  3. IBRANCE [Suspect]
     Active Substance: PALBOCICLIB
     Indication: BREAST CANCER FEMALE
     Route: 048
     Dates: start: 20180913
  4. HYDROCODONE-ACETAMINOPHEN [Concomitant]
     Active Substance: ACETAMINOPHEN\HYDROCODONE
  5. FENTANYL. [Concomitant]
     Active Substance: FENTANYL
  6. FASLODEX [Concomitant]
     Active Substance: FULVESTRANT
  7. COUMADIN [Concomitant]
     Active Substance: WARFARIN SODIUM
  8. FENTANYL. [Concomitant]
     Active Substance: FENTANYL
  9. WARFARIN [Concomitant]
     Active Substance: WARFARIN
  10. ZOMETA [Concomitant]
     Active Substance: ZOLEDRONIC ACID
  11. HEPARIN LOCK FLUSH [Concomitant]
     Active Substance: HEPARIN SODIUM
  12. ESTRACE [Concomitant]
     Active Substance: ESTRADIOL

REACTIONS (1)
  - Neutropenia [None]
